FAERS Safety Report 4641230-3 (Version None)
Quarter: 2005Q2

REPORT INFORMATION
  Report Type: 
  Country: None (occurrence: None)
  Receive Date: 20050419
  Receipt Date: 20050405
  Transmission Date: 20051028
  Serious: Yes (Hospitalization)
  Sender: FDA-Public Use
  Company Number: 05P-163-0288163-00

PATIENT
  Age: 62 Year
  Sex: Female
  Weight: 90.7194 kg

DRUGS (15)
  1. HUMIRA [Suspect]
     Indication: RHEUMATOID ARTHRITIS
     Dosage: 40 MG, 1 IN 2 WK, SUBCUTANEOUS
     Route: 058
     Dates: start: 20031014, end: 20050101
  2. HUMIRA [Suspect]
     Dosage: 40 MILLICURIES, 1 IN 3 WK, SUBCUTANEOUS
     Route: 058
     Dates: start: 20050101, end: 20050223
  3. PREDNISONE [Concomitant]
  4. METHOTREXATE [Concomitant]
  5. CELECOXIB [Concomitant]
  6. CLOPIDOGREL BISULFATE [Concomitant]
  7. PREGAMAL [Concomitant]
  8. ZOCOR [Concomitant]
  9. NIASPAN [Concomitant]
  10. SUCRALFATE [Concomitant]
  11. METOPROLOL TARTRATE [Concomitant]
  12. ENALAPRIL [Concomitant]
  13. CALCIUM GLUCONATE [Concomitant]
  14. GLUCOSAMINE [Concomitant]
  15. ASCORBIC ACID [Concomitant]

REACTIONS (6)
  - ABSCESS [None]
  - CELLULITIS [None]
  - FURUNCLE [None]
  - INFLUENZA [None]
  - SKIN HYPERPIGMENTATION [None]
  - ULCER [None]
